FAERS Safety Report 7057359-9 (Version None)
Quarter: 2010Q4

REPORT INFORMATION
  Report Type: 
  Country: None (occurrence: None)
  Receive Date: 20101022
  Receipt Date: 20101013
  Transmission Date: 20110411
  Serious: Yes (Disabling)
  Sender: FDA-Public Use
  Company Number: JP-ASTRAZENECA-2010SE48740

PATIENT
  Age: 51 Year
  Sex: Female

DRUGS (1)
  1. ROPIVACAINE HYDROCHLORIDE [Suspect]
     Indication: POSTOPERATIVE ANALGESIA
     Route: 008

REACTIONS (3)
  - INTERVERTEBRAL DISC PROTRUSION [None]
  - NEUROTOXICITY [None]
  - PERIPHERAL NERVE PALSY [None]
